FAERS Safety Report 7324092-5 (Version None)
Quarter: 2011Q1

REPORT INFORMATION
  Report Type: 
  Country: None (occurrence: None)
  Receive Date: 20110301
  Receipt Date: 20110217
  Transmission Date: 20110831
  Serious: Yes (Hospitalization)
  Sender: FDA-Public Use
  Company Number: ES-TEVA-268631ISR

PATIENT
  Age: 75 Year
  Sex: Male

DRUGS (19)
  1. LENALIDOMIDE [Suspect]
     Indication: MULTIPLE MYELOMA
     Dates: start: 20100914
  2. ASPIRIN [Concomitant]
     Indication: THROMBOSIS PROPHYLAXIS
     Route: 048
     Dates: start: 19990101
  3. ATORVASTATIN [Concomitant]
     Indication: HYPERCHOLESTEROLAEMIA
     Route: 048
     Dates: start: 19990101
  4. SERENOA REPENS [Concomitant]
     Indication: BENIGN PROSTATIC HYPERPLASIA
     Route: 048
     Dates: start: 20070101
  5. METAMIZOLE [Concomitant]
     Indication: BONE PAIN
     Route: 048
     Dates: start: 20100801
  6. BUPRENORPHINE [Concomitant]
     Indication: CHEST PAIN
     Dates: start: 20101018
  7. AMLODIPINE [Concomitant]
     Indication: HYPERTENSION
     Route: 048
     Dates: start: 20060101
  8. CLOPIDOGREL [Concomitant]
     Indication: THROMBOSIS PROPHYLAXIS
     Dates: start: 19990101
  9. VALSARTAN [Concomitant]
     Indication: HYPERTENSION
     Route: 048
     Dates: start: 20060101
  10. CALCIUM [Concomitant]
     Indication: BONE DISORDER
     Route: 048
     Dates: start: 20100914
  11. CLAVULANATE POTASSIUM [Concomitant]
     Indication: RESPIRATORY TRACT INFECTION
     Route: 048
     Dates: start: 20100921, end: 20100930
  12. PANTOPRAZOLE [Concomitant]
     Indication: PROPHYLAXIS AGAINST GASTROINTESTINAL ULCER
     Route: 048
     Dates: start: 19990101
  13. ERGOCALCIFEROL [Concomitant]
     Indication: BONE DISORDER
     Dates: start: 20100914
  14. DEXAMETHASONE [Suspect]
     Indication: MULTIPLE MYELOMA
     Dates: start: 20100914
  15. SERENOA REPENS [Concomitant]
     Route: 048
     Dates: start: 20070101
  16. ZOLEDRONIC ACID [Concomitant]
     Indication: PROPHYLAXIS
     Route: 048
     Dates: start: 20100914
  17. CODEINE [Concomitant]
     Indication: COUGH
     Dates: start: 20101018, end: 20101023
  18. AMIODARONE [Concomitant]
     Indication: ATRIAL FIBRILLATION
     Route: 048
     Dates: start: 20080101
  19. AMOXICILLIN [Concomitant]
     Indication: RESPIRATORY TRACT INFECTION
     Dates: start: 20100921, end: 20100930

REACTIONS (1)
  - RESPIRATORY TRACT INFECTION [None]
